FAERS Safety Report 8231441-2 (Version None)
Quarter: 2012Q1

REPORT INFORMATION
  Report Type: 
  Country: None (occurrence: None)
  Receive Date: 20120323
  Receipt Date: 20120313
  Transmission Date: 20120608
  Serious: Yes (Hospitalization)
  Sender: FDA-Public Use
  Company Number: JP-PFIZER INC-2012061307

PATIENT
  Age: 82 Year
  Sex: Female

DRUGS (5)
  1. LOSARTAN POTASSIUM [Suspect]
     Dosage: 50 MG, DAILY
     Route: 048
  2. VILDAGLIPTIN [Concomitant]
     Dosage: UNK
     Route: 048
  3. CONIEL [Concomitant]
     Dosage: UNK
     Route: 048
  4. OMEPRAZOLE [Concomitant]
     Dosage: UNK
     Route: 048
  5. LIPITOR [Suspect]
     Dosage: 10 MG, DAILY
     Route: 048

REACTIONS (1)
  - BLOOD POTASSIUM INCREASED [None]
